FAERS Safety Report 5224451-0 (Version None)
Quarter: 2007Q1

REPORT INFORMATION
  Report Type: 
  Country: None (occurrence: None)
  Receive Date: 20070130
  Receipt Date: 20070119
  Transmission Date: 20070707
  Serious: Yes (Hospitalization)
  Sender: FDA-Public Use
  Company Number: DE-PFIZER INC-2007002074

PATIENT
  Sex: Female
  Weight: 59 kg

DRUGS (6)
  1. SU-011,248 [Suspect]
     Indication: NON-SMALL CELL LUNG CANCER
     Route: 048
  2. GEMCITABINE [Suspect]
     Indication: NON-SMALL CELL LUNG CANCER
     Route: 042
  3. CISPLATIN [Suspect]
     Indication: NON-SMALL CELL LUNG CANCER
     Route: 042
  4. ALLOPURINOL SODIUM [Concomitant]
     Route: 048
     Dates: start: 20061219, end: 20070102
  5. DEXAMETHASONE [Concomitant]
     Route: 048
     Dates: start: 20061220, end: 20061225
  6. PANTOPRAZOL [Concomitant]
     Route: 048
     Dates: start: 20061219, end: 20070102

REACTIONS (2)
  - DEHYDRATION [None]
  - TOOTH ABSCESS [None]
